FAERS Safety Report 11189520 (Version 1)
Quarter: 2015Q2

REPORT INFORMATION
  Report Type: Spontaneous
  Country: GB (occurrence: GB)
  Receive Date: 20150615
  Receipt Date: 20150615
  Transmission Date: 20150821
  Serious: Yes (Hospitalization)
  Sender: FDA-Public Use
  Company Number: GB-ROCHE-1591995

PATIENT
  Sex: Female

DRUGS (1)
  1. HERCEPTIN [Suspect]
     Active Substance: TRASTUZUMAB
     Indication: PRODUCT USED FOR UNKNOWN INDICATION
     Dosage: CYCLE 15
     Route: 058

REACTIONS (5)
  - Chronic obstructive pulmonary disease [Unknown]
  - Constipation [Unknown]
  - Adnexa uteri pain [Unknown]
  - Dyspnoea [Unknown]
  - Neuropathy peripheral [Unknown]
